FAERS Safety Report 8971028 (Version 1)
Quarter: 2012Q4

REPORT INFORMATION
  Report Type: 
  Country: US (occurrence: US)
  Receive Date: 20121218
  Receipt Date: 20121218
  Transmission Date: 20130627
  Serious: Yes (Other)
  Sender: FDA-Public Use
  Company Number: US-BRISTOL-MYERS SQUIBB COMPANY-16473266

PATIENT
  Age: 65 Year
  Sex: Female

DRUGS (16)
  1. ABILIFY [Suspect]
     Indication: DEPRESSION
     Dosage: Reduced to dose to taking it every other night
  2. TRAZODONE HCL [Suspect]
  3. EFFEXOR [Suspect]
  4. DILANTIN [Suspect]
  5. PREVACID [Concomitant]
  6. LEVOTHYROXINE [Concomitant]
  7. PREDNISONE [Concomitant]
  8. LISINOPRIL [Concomitant]
  9. SPIRONOLACTONE [Concomitant]
  10. BUMEX [Concomitant]
  11. BACLOFEN [Concomitant]
  12. NEURONTIN [Concomitant]
  13. VITAMIN C [Concomitant]
  14. VITAMIN D [Concomitant]
  15. VITAMIN E [Concomitant]
  16. POTASSIUM [Concomitant]

REACTIONS (2)
  - Convulsion [Recovering/Resolving]
  - Depression [Recovering/Resolving]
